FAERS Safety Report 9128703 (Version 1)
Quarter: 2013Q1

REPORT INFORMATION
  Report Type: Spontaneous
  Country: US (occurrence: US)
  Receive Date: 20130125
  Receipt Date: 20130125
  Transmission Date: 20140127
  Serious: Yes (Hospitalization, Other)
  Sender: FDA-Public Use
  Company Number: US-ELI_LILLY_AND_COMPANY-US201203002996

PATIENT
  Sex: Male

DRUGS (8)
  1. BYETTA [Suspect]
     Dosage: 5 UG, BID
     Route: 058
     Dates: start: 200906
  2. SIMVASTATIN [Concomitant]
     Dosage: 40 MG, EACH EVENING
  3. TOPROL [Concomitant]
     Dosage: 25 MG, BID
  4. METFORMIN [Concomitant]
     Dosage: 1000 MG, BID
  5. ZESTRIL [Concomitant]
     Dosage: 2.5 MG, QD
  6. AMARYL [Concomitant]
     Dosage: 4 MG, EACH EVENING
  7. BABY ASPIRIN [Concomitant]
     Dosage: UNK, QD
  8. ELAVIL [Concomitant]
     Dosage: 50 MG, EACH EVENING
     Route: 048

REACTIONS (5)
  - Biliary dyskinesia [Unknown]
  - Cholecystitis chronic [Unknown]
  - Pseudocyst [Unknown]
  - Pancreatitis [Unknown]
  - Cholelithiasis [Unknown]
